FAERS Safety Report 18072324 (Version 4)
Quarter: 2020Q4

REPORT INFORMATION
  Report Type: Spontaneous
  Country: US (occurrence: US)
  Receive Date: 20200727
  Receipt Date: 20201106
  Transmission Date: 20210113
  Serious: Yes (Death, Hospitalization, Other)
  Sender: FDA-Public Use
  Company Number: US-ASTRAZENECA-2019SE10328

PATIENT
  Age: 79 Year
  Sex: Female
  Weight: 119.7 kg

DRUGS (38)
  1. NEXIUM [Suspect]
     Active Substance: ESOMEPRAZOLE MAGNESIUM
     Indication: GASTROOESOPHAGEAL REFLUX DISEASE
     Route: 048
     Dates: start: 2012
  2. PROTONIX [Suspect]
     Active Substance: PANTOPRAZOLE SODIUM
     Indication: GASTROOESOPHAGEAL REFLUX DISEASE
     Route: 065
     Dates: start: 1990, end: 2015
  3. XIFAXAN [Concomitant]
     Active Substance: RIFAXIMIN
  4. AZITHROMYCIN ANHYDROUS. [Concomitant]
     Active Substance: AZITHROMYCIN ANHYDROUS
     Dates: start: 20180805
  5. PANTOPRAZOLE SODIUM. [Concomitant]
     Active Substance: PANTOPRAZOLE SODIUM
     Dates: start: 20180216
  6. NEXIUM [Suspect]
     Active Substance: ESOMEPRAZOLE MAGNESIUM
     Indication: GASTROOESOPHAGEAL REFLUX DISEASE
     Route: 048
     Dates: start: 2012, end: 2015
  7. PROTONIX [Suspect]
     Active Substance: PANTOPRAZOLE SODIUM
     Indication: GASTROOESOPHAGEAL REFLUX DISEASE
     Route: 065
     Dates: start: 2012
  8. ALDACTONE [Concomitant]
     Active Substance: SPIRONOLACTONE
  9. JANUVIA [Concomitant]
     Active Substance: SITAGLIPTIN PHOSPHATE
  10. SITAGLIPTIN PHOSPHATE [Concomitant]
     Active Substance: SITAGLIPTIN PHOSPHATE
     Dates: start: 20180824
  11. AMITRIPTYLINE HCL [Concomitant]
     Active Substance: AMITRIPTYLINE
     Indication: SLEEP DISORDER
     Dates: start: 20160216
  12. CEPHALEXIN. [Concomitant]
     Active Substance: CEPHALEXIN
     Dates: start: 20180601
  13. PRILOSEC [Suspect]
     Active Substance: OMEPRAZOLE MAGNESIUM
     Indication: GASTROOESOPHAGEAL REFLUX DISEASE
     Route: 048
     Dates: start: 1990, end: 2015
  14. PROTONIX [Suspect]
     Active Substance: PANTOPRAZOLE SODIUM
     Indication: GASTROOESOPHAGEAL REFLUX DISEASE
     Dosage: GENERIC
     Route: 065
     Dates: start: 1990, end: 2015
  15. LASIX [Concomitant]
     Active Substance: FUROSEMIDE
  16. MAGNESIUM OXIDE. [Concomitant]
     Active Substance: MAGNESIUM OXIDE
  17. ATENOLOL. [Concomitant]
     Active Substance: ATENOLOL
     Dates: start: 20130521
  18. TUMS [Concomitant]
     Active Substance: CALCIUM CARBONATE
  19. PROPRANOLOL [Concomitant]
     Active Substance: PROPRANOLOL HYDROCHLORIDE
  20. ATACAND [Concomitant]
     Active Substance: CANDESARTAN CILEXETIL
  21. ALLEGRA [Concomitant]
     Active Substance: FEXOFENADINE HYDROCHLORIDE
  22. GABAPENTIN. [Concomitant]
     Active Substance: GABAPENTIN
     Dates: start: 20160216
  23. ZANTAC [Concomitant]
     Active Substance: RANITIDINE HYDROCHLORIDE
     Dates: start: 2016, end: 2018
  24. NOVOLOG [Concomitant]
     Active Substance: INSULIN ASPART
  25. LACTULOSE. [Concomitant]
     Active Substance: LACTULOSE
  26. FENTANYL. [Concomitant]
     Active Substance: FENTANYL
  27. PROPRANOLOL HCL [Concomitant]
     Active Substance: PROPRANOLOL HYDROCHLORIDE
     Dates: start: 20180506
  28. ALBUTEROL. [Concomitant]
     Active Substance: ALBUTEROL
  29. CARVEDILOL. [Concomitant]
     Active Substance: CARVEDILOL
     Dates: start: 20161216
  30. GUAIFENESIN. [Concomitant]
     Active Substance: GUAIFENESIN
     Dates: start: 20160916
  31. NEXIUM [Suspect]
     Active Substance: ESOMEPRAZOLE MAGNESIUM
     Indication: GASTROOESOPHAGEAL REFLUX DISEASE
     Dosage: GENERIC
     Route: 065
     Dates: start: 1990, end: 2015
  32. LANTUS [Concomitant]
     Active Substance: INSULIN GLARGINE
  33. AMITRIPTYLINE HCL [Concomitant]
     Active Substance: AMITRIPTYLINE
     Indication: PAIN
     Dates: start: 20160216
  34. TELMISARTAN. [Concomitant]
     Active Substance: TELMISARTAN
     Dates: start: 20130619
  35. ASPIRIN. [Concomitant]
     Active Substance: ASPIRIN
     Indication: PAIN
  36. PREVACID [Suspect]
     Active Substance: LANSOPRAZOLE
     Indication: GASTROOESOPHAGEAL REFLUX DISEASE
     Route: 065
     Dates: start: 1990, end: 2015
  37. OXYCODONE [Concomitant]
     Active Substance: OXYCODONE
  38. HYDROCHLOROTHIAZIDE. [Concomitant]
     Active Substance: HYDROCHLOROTHIAZIDE
     Indication: BLOOD PRESSURE MEASUREMENT
     Dates: start: 20130303

REACTIONS (9)
  - Hepatic cirrhosis [Unknown]
  - Biliary cirrhosis [Unknown]
  - Rebound acid hypersecretion [Unknown]
  - Non-alcoholic steatohepatitis [Fatal]
  - Hepatic failure [Unknown]
  - Renal failure [Unknown]
  - Liver disorder [Unknown]
  - Liver injury [Unknown]
  - Chronic kidney disease [Unknown]

NARRATIVE: CASE EVENT DATE: 2013
